FAERS Safety Report 8363808-6 (Version None)
Quarter: 2012Q2

REPORT INFORMATION
  Report Type: 
  Country: None (occurrence: None)
  Receive Date: 20120515
  Receipt Date: 20120515
  Transmission Date: 20120825
  Serious: Yes (Hospitalization)
  Sender: FDA-Public Use
  Company Number: None

PATIENT
  Age: 66 Year
  Sex: Male
  Weight: 114 kg

DRUGS (1)
  1. LIDOCAINE AND EPINEPHRINE [Suspect]
     Dosage: 3.4 ML
     Dates: start: 20111202, end: 20120202

REACTIONS (7)
  - GRAND MAL CONVULSION [None]
  - HYPOTENSION [None]
  - DYSPNOEA [None]
  - RESPIRATORY DEPRESSION [None]
  - UNRESPONSIVE TO STIMULI [None]
  - PULSE ABSENT [None]
  - CARDIO-RESPIRATORY ARREST [None]
